FAERS Safety Report 17722923 (Version 1)
Quarter: 2020Q2

REPORT INFORMATION
  Report Type: Spontaneous
  Country: US (occurrence: US)
  Receive Date: 20200428
  Receipt Date: 20200428
  Transmission Date: 20200714
  Serious: No
  Sender: FDA-Public Use
  Company Number: None

PATIENT
  Age: 86 Year
  Sex: Female
  Weight: 63.9 kg

DRUGS (8)
  1. BEOVU [Suspect]
     Active Substance: BROLUCIZUMAB-DBLL
     Indication: MACULAR DEGENERATION
     Route: 047
  2. TUMS [Concomitant]
     Active Substance: CALCIUM CARBONATE
  3. IRON [Concomitant]
     Active Substance: IRON
  4. LOSARTAN. [Concomitant]
     Active Substance: LOSARTAN
  5. DRY EYE OMEGA BENEFITS [Concomitant]
  6. TORSAMIDE [Concomitant]
  7. AMLODIPINE [Concomitant]
     Active Substance: AMLODIPINE BESYLATE
  8. VITAMIN D3 [Concomitant]
     Active Substance: CHOLECALCIFEROL

REACTIONS (1)
  - Visual impairment [None]

NARRATIVE: CASE EVENT DATE: 20200208
